FAERS Safety Report 5801001-9 (Version None)
Quarter: 2008Q3

REPORT INFORMATION
  Report Type: 
  Country: None (occurrence: None)
  Receive Date: 20080702
  Receipt Date: 20080618
  Transmission Date: 20090109
  Serious: Yes (Hospitalization, Other)
  Sender: FDA-Public Use
  Company Number: 2008AL007264

PATIENT
  Age: 50 Year
  Sex: Male

DRUGS (7)
  1. DIGOXIN [Suspect]
     Indication: ARRHYTHMIA
     Dosage: 0.25MG, QD, PO
     Route: 048
     Dates: start: 20050101, end: 20080508
  2. LIPITOR [Concomitant]
  3. PRINIVIL [Concomitant]
  4. TOPROL-XL [Concomitant]
  5. LASIX [Concomitant]
  6. ASPIRIN [Concomitant]
  7. XANAX [Concomitant]

REACTIONS (4)
  - CHEST PAIN [None]
  - EYE SWELLING [None]
  - HEART RATE INCREASED [None]
  - HEART RATE IRREGULAR [None]
